FAERS Safety Report 9717025 (Version 3)
Quarter: 2015Q3

REPORT INFORMATION
  Report Type: Spontaneous
  Country: US (occurrence: US)
  Receive Date: 20131127
  Receipt Date: 20150803
  Transmission Date: 20151125
  Serious: No
  Sender: FDA-Public Use
  Company Number: US-GILEAD-2009-0020154

PATIENT
  Age: 82 Year
  Sex: Female
  Weight: 58.97 kg

DRUGS (8)
  1. LETAIRIS [Suspect]
     Active Substance: AMBRISENTAN
     Indication: PULMONARY HYPERTENSION
     Route: 048
     Dates: start: 20090202
  2. THERAGRAN [Concomitant]
     Active Substance: VITAMINS
  3. METOPROLOL [Concomitant]
     Active Substance: METOPROLOL
  4. SPIRIVA [Concomitant]
     Active Substance: TIOTROPIUM BROMIDE MONOHYDRATE
  5. CALTRATE [Concomitant]
     Active Substance: CALCIUM CARBONATE
  6. COUMADIN [Concomitant]
     Active Substance: WARFARIN SODIUM
  7. LIPITOR [Concomitant]
     Active Substance: ATORVASTATIN CALCIUM
  8. TYLENOL [Concomitant]
     Active Substance: ACETAMINOPHEN

REACTIONS (1)
  - Muscle spasms [Recovered/Resolved]

NARRATIVE: CASE EVENT DATE: 20090202
